FAERS Safety Report 5072047-6 (Version None)
Quarter: 2006Q3

REPORT INFORMATION
  Report Type: 
  Country: None (occurrence: None)
  Receive Date: 20060807
  Receipt Date: 20060801
  Transmission Date: 20061208
  Serious: Yes (Hospitalization)
  Sender: FDA-Public Use
  Company Number: BE-AVENTIS-200618097GDDC

PATIENT
  Age: 49 Year
  Sex: Male
  Weight: 78 kg

DRUGS (6)
  1. OTHER ANTINEOPLASTIC AGENTS [Concomitant]
     Route: 042
     Dates: start: 20060724, end: 20060724
  2. IRINOTECAN HCL [Suspect]
     Route: 042
     Dates: start: 20060724, end: 20060724
  3. LEUCOVORIN CALCIUM [Suspect]
     Route: 042
     Dates: start: 20060724, end: 20060726
  4. FLUOROURACIL [Suspect]
     Route: 042
     Dates: start: 20060724, end: 20060726
  5. IMODIUM [Concomitant]
     Route: 048
  6. KONAKION [Concomitant]

REACTIONS (2)
  - CATHETER RELATED INFECTION [None]
  - THROMBOCYTOPENIA [None]
